FAERS Safety Report 10383812 (Version 1)
Quarter: 2014Q3

REPORT INFORMATION
  Report Type: Spontaneous
  Country: US (occurrence: None)
  Receive Date: 20140813
  Receipt Date: 20140813
  Transmission Date: 20150326
  Serious: Yes (Hospitalization)
  Sender: FDA-Public Use
  Company Number: None

PATIENT
  Age: 84 Year
  Sex: Male
  Weight: 61.6 kg

DRUGS (1)
  1. ZOLPIDEM [Suspect]
     Active Substance: ZOLPIDEM\ZOLPIDEM TARTRATE
     Dosage: ZOLPIDEM QHS/BEDTIME
     Route: 048

REACTIONS (3)
  - Unresponsive to stimuli [None]
  - Loss of consciousness [None]
  - Fall [None]

NARRATIVE: CASE EVENT DATE: 20140802
